FAERS Safety Report 11993320 (Version 2)
Quarter: 2016Q1

REPORT INFORMATION
  Report Type: Spontaneous
  Country: US (occurrence: US)
  Receive Date: 20160203
  Receipt Date: 20160223
  Transmission Date: 20160526
  Serious: Yes (Hospitalization)
  Sender: FDA-Public Use
  Company Number: PHEH2016US002505

PATIENT
  Age: 81 Year
  Sex: Male
  Weight: 79.37 kg

DRUGS (2)
  1. THIAZIDES [Concomitant]
     Active Substance: UNSPECIFIED INGREDIENT
     Indication: BLOOD PRESSURE ABNORMAL
     Route: 065
  2. STALEVO [Suspect]
     Active Substance: CARBIDOPA\ENTACAPONE\LEVODOPA
     Indication: NEOVASCULAR AGE-RELATED MACULAR DEGENERATION
     Dosage: 1 DF, TID ( CARBIDOPA 25,LEVODOPA 100)
     Route: 048
     Dates: start: 20151210, end: 20160125

REACTIONS (5)
  - Vomiting [Unknown]
  - Pancreatitis acute [Recovered/Resolved]
  - Nausea [Unknown]
  - Abdominal tenderness [Unknown]
  - Abdominal pain upper [Unknown]

NARRATIVE: CASE EVENT DATE: 20160125
